FAERS Safety Report 9000032 (Version 2)
Quarter: 2013Q1

REPORT INFORMATION
  Report Type: Spontaneous
  Country: US (occurrence: US)
  Receive Date: 20130102
  Receipt Date: 20130308
  Transmission Date: 20140127
  Serious: Yes (Other)
  Sender: FDA-Public Use
  Company Number: US-PFIZER INC-2012331450

PATIENT
  Age: 63 Year
  Sex: Female
  Weight: 60.09 kg

DRUGS (6)
  1. ACCUPRIL [Suspect]
     Dosage: UNK
  2. SYNTHROID [Concomitant]
     Dosage: 75 UG, UNK
  3. LOSARTAN [Concomitant]
     Dosage: 100 MG, UNK
  4. FISH OIL [Concomitant]
     Dosage: UNK
  5. VIT D [Concomitant]
     Dosage: UNK
  6. CALCIUM [Concomitant]
     Dosage: UNK

REACTIONS (7)
  - Urinary tract infection [Unknown]
  - Hyperglycaemia [Unknown]
  - Hypothyroidism [Unknown]
  - Hypertension [Unknown]
  - Atrophic vulvovaginitis [Unknown]
  - Constipation [Unknown]
  - Fatigue [Unknown]
